FAERS Safety Report 18903987 (Version 1)
Quarter: 2021Q1

REPORT INFORMATION
  Report Type: Spontaneous
  Country: US (occurrence: US)
  Receive Date: 20210217
  Receipt Date: 20210217
  Transmission Date: 20210420
  Serious: Yes (Hospitalization)
  Sender: FDA-Public Use
  Company Number: None

PATIENT
  Age: 54 Year
  Sex: Female
  Weight: 76.3 kg

DRUGS (2)
  1. LETROZOLE. [Concomitant]
     Active Substance: LETROZOLE
  2. ASPIRIN 300MG [Suspect]
     Active Substance: ASPIRIN

REACTIONS (3)
  - Cerebral thrombosis [None]
  - Fibrin D dimer increased [None]
  - Ischaemic stroke [None]

NARRATIVE: CASE EVENT DATE: 20210207
